FAERS Safety Report 19164008 (Version 6)
Quarter: 2022Q1

REPORT INFORMATION
  Report Type: Spontaneous
  Country: IN (occurrence: IN)
  Receive Date: 20210421
  Receipt Date: 20220307
  Transmission Date: 20220424
  Serious: Yes (Death, Hospitalization, Other)
  Sender: FDA-Public Use
  Company Number: IN-PFIZER INC-2021393577

PATIENT
  Age: 59 Year
  Sex: Female

DRUGS (8)
  1. PALBOCICLIB [Suspect]
     Active Substance: PALBOCICLIB
     Indication: Breast cancer metastatic
     Dosage: 125 MG, 1X/DAY
     Route: 048
     Dates: start: 20210223
  2. PALBOCICLIB [Suspect]
     Active Substance: PALBOCICLIB
     Dosage: 125 MG, CYCLIC (DAY 1-DAY 21, THEN 7 DAYS GAP)
     Route: 048
  3. PALBOCICLIB [Suspect]
     Active Substance: PALBOCICLIB
     Dosage: 125 MG, CYCLIC (DAY1-DAY21, THEN 7 DAYS GAP)
     Route: 048
     Dates: start: 20210322
  4. LETROZOLE [Concomitant]
     Active Substance: LETROZOLE
     Indication: Breast cancer
     Dosage: 2.5 MG ONCE DAILY
     Dates: start: 20210123
  5. ULTRACET [Concomitant]
     Active Substance: ACETAMINOPHEN\TRAMADOL HYDROCHLORIDE
     Dosage: 1 TAB TWICE DAILY
  6. CALCIUM\CHOLECALCIFEROL [Concomitant]
     Active Substance: CALCIUM\CHOLECALCIFEROL
     Dosage: 500 MG, TWICE A DAY
  7. IMODIUM [Concomitant]
     Active Substance: LOPERAMIDE HYDROCHLORIDE
     Indication: Diarrhoea
     Dosage: 2 MG PRN
  8. ZOLDONAT [Concomitant]
     Dosage: 4 MG IN 100 ML NS OVER 30 MIN

REACTIONS (11)
  - Death [Fatal]
  - Hypercalcaemia [Unknown]
  - Spinal compression fracture [Unknown]
  - Neoplasm progression [Unknown]
  - Heart rate increased [Unknown]
  - Blood pressure increased [Unknown]
  - White blood cell count abnormal [Unknown]
  - Haemoglobin abnormal [Unknown]
  - Pulmonary calcification [Unknown]
  - Lymphadenopathy [Unknown]
  - Back pain [Unknown]

NARRATIVE: CASE EVENT DATE: 20210521
